FAERS Safety Report 24926671 (Version 1)
Quarter: 2025Q1

REPORT INFORMATION
  Report Type: Spontaneous
  Country: US (occurrence: US)
  Receive Date: 20250205
  Receipt Date: 20250205
  Transmission Date: 20250409
  Serious: No
  Sender: GLAXOSMITHKLINE
  Company Number: US-GSKCCFUS-Case-02209359_AE-121260

PATIENT
  Sex: Female

DRUGS (1)
  1. TRELEGY ELLIPTA [Suspect]
     Active Substance: FLUTICASONE FUROATE\UMECLIDINIUM BROMIDE\VILANTEROL TRIFENATATE
     Indication: Cardiac failure
     Dosage: 1 PUFF(S), QD; 100/62.5/25 MCG
     Route: 055

REACTIONS (3)
  - Dysphonia [Unknown]
  - Product prescribing issue [Unknown]
  - Product use in unapproved indication [Unknown]
